FAERS Safety Report 9966041 (Version 1)
Quarter: 2014Q1

REPORT INFORMATION
  Report Type: Report from Study
  Country: US (occurrence: US)
  Receive Date: 20140305
  Receipt Date: 20140305
  Transmission Date: 20141002
  Serious: No
  Sender: FDA-Public Use
  Company Number: US-ABBVIE-13P-163-1125762-00

PATIENT
  Age: 47 Year
  Sex: Female

DRUGS (7)
  1. HUMIRA [Suspect]
     Indication: CROHN^S DISEASE
     Dates: start: 20130628
  2. VITAMIN D [Concomitant]
     Indication: VITAMIN D DEFICIENCY
     Dosage: 2000 IU DAILY
  3. FOLIC ACID [Concomitant]
     Indication: ANAEMIA
     Dosage: 1 MG DAILY
  4. IRON [Concomitant]
     Indication: ANAEMIA
     Dosage: 200 X2 DAILY
  5. FEOSOL [Concomitant]
     Indication: ANAEMIA
     Dosage: 200 X2 DAILY
  6. APRISO [Concomitant]
     Indication: CROHN^S DISEASE
     Dosage: 4 TABLETS DAILY
  7. BENADRYL [Concomitant]
     Indication: PRURITUS
     Dosage: X2

REACTIONS (1)
  - Skin infection [Not Recovered/Not Resolved]
